FAERS Safety Report 8945186 (Version 1)
Quarter: 2012Q4

REPORT INFORMATION
  Report Type: 
  Country: DK (occurrence: DE)
  Receive Date: 20121205
  Receipt Date: 20121205
  Transmission Date: 20130627
  Serious: Yes (Hospitalization, Other)
  Sender: FDA-Public Use
  Company Number: DE-FRI-1000040784

PATIENT
  Sex: Male
  Weight: 3.1 kg

DRUGS (2)
  1. CITALOPRAM [Suspect]
     Indication: DEPRESSION
     Dosage: 60 mg
     Route: 064
     Dates: start: 20090829, end: 20100606
  2. FEMIBION [Concomitant]
     Indication: PROPHYLAXIS OF NEURAL TUBE DEFECT
     Dosage: 0.4 mg (0-21 gestational week)
     Route: 064

REACTIONS (8)
  - Neonatal respiratory distress syndrome [Recovered/Resolved]
  - Hypoglycaemia neonatal [Recovered/Resolved]
  - Developmental delay [Recovered/Resolved]
  - Agitation neonatal [Recovered/Resolved]
  - Oxygen saturation decreased [Recovered/Resolved]
  - Foetal exposure during pregnancy [Recovered/Resolved]
  - Prescribed overdose [Recovered/Resolved]
  - Foetal heart rate deceleration [Recovered/Resolved]
